FAERS Safety Report 18243282 (Version 1)
Quarter: 2020Q3

REPORT INFORMATION
  Report Type: Spontaneous
  Country: US (occurrence: US)
  Receive Date: 20200908
  Receipt Date: 20200908
  Transmission Date: 20201103
  Serious: Yes (Hospitalization, Other)
  Sender: FDA-Public Use
  Company Number: US-PERRIGO-20US012692

PATIENT
  Age: 45 Year
  Sex: Male

DRUGS (12)
  1. PRILOSEC [Suspect]
     Active Substance: OMEPRAZOLE MAGNESIUM
     Indication: DYSPEPSIA
     Dosage: 20 MG
     Route: 065
  2. DEXILANT [Suspect]
     Active Substance: DEXLANSOPRAZOLE
     Indication: PRODUCT USED FOR UNKNOWN INDICATION
     Dosage: UNKNOWN, UNKNOWN
     Route: 065
  3. PREVACID 24 HR [Suspect]
     Active Substance: LANSOPRAZOLE
     Indication: DYSPEPSIA
     Dosage: 20 MG
     Route: 048
  4. PANTOPRAZOLE                       /01263204/ [Suspect]
     Active Substance: PANTOPRAZOLE SODIUM
     Indication: DYSPEPSIA
  5. ZEGERID (OMEPRAZOLE) [Suspect]
     Active Substance: OMEPRAZOLE
     Indication: DYSPEPSIA
     Dosage: 20 MG
     Route: 065
  6. ESOMEPRAZOLE. [Suspect]
     Active Substance: ESOMEPRAZOLE MAGNESIUM
     Indication: DYSPEPSIA
     Dosage: 40 MG, BID
     Route: 048
     Dates: start: 20120812, end: 20151201
  7. PANTOPRAZOLE                       /01263204/ [Suspect]
     Active Substance: PANTOPRAZOLE SODIUM
     Indication: GASTROOESOPHAGEAL REFLUX DISEASE
     Dosage: 20 MG, QD
     Route: 048
     Dates: start: 20130708
  8. PROTONIX [Suspect]
     Active Substance: PANTOPRAZOLE SODIUM
     Indication: DYSPEPSIA
     Dosage: 20 MG
     Route: 065
  9. DEXLANSOPRAZOLE [Suspect]
     Active Substance: DEXLANSOPRAZOLE
     Indication: PRODUCT USED FOR UNKNOWN INDICATION
     Dosage: UNKNOWN, UNKNOWN
     Route: 065
  10. OMEPRAZOLE                         /00661202/ [Suspect]
     Active Substance: OMEPRAZOLE SODIUM
     Indication: DYSPEPSIA
     Dosage: 20 MG, QD
     Route: 048
     Dates: start: 20120202, end: 20160603
  11. LANSOPRAZOLE ACTAVIS [Suspect]
     Active Substance: LANSOPRAZOLE
     Indication: DYSPEPSIA
     Dosage: 30 MG, QD
     Route: 065
     Dates: start: 20101123
  12. NEXIUM [Suspect]
     Active Substance: ESOMEPRAZOLE MAGNESIUM
     Indication: DYSPEPSIA
     Dosage: 40 MG, BID
     Route: 048
     Dates: start: 20131030, end: 20150601

REACTIONS (17)
  - Proteinuria [Unknown]
  - Diabetic end stage renal disease [Unknown]
  - Disability [Not Recovered/Not Resolved]
  - Pyelonephritis [Unknown]
  - Renal colic [Unknown]
  - Nephropathy [Unknown]
  - End stage renal disease [Unknown]
  - Renal failure [Unknown]
  - Haemodialysis [Unknown]
  - Renal impairment [Not Recovered/Not Resolved]
  - Device dependence [Unknown]
  - Acute kidney injury [Not Recovered/Not Resolved]
  - Renal atrophy [Unknown]
  - Chronic kidney disease [Not Recovered/Not Resolved]
  - Hypertensive nephropathy [Unknown]
  - Dialysis [Not Recovered/Not Resolved]
  - Nephrogenic anaemia [Unknown]

NARRATIVE: CASE EVENT DATE: 20090509
